FAERS Safety Report 21176372 (Version 1)
Quarter: 2022Q3

REPORT INFORMATION
  Report Type: Report from Study
  Country: ES (occurrence: ES)
  Receive Date: 20220805
  Receipt Date: 20220805
  Transmission Date: 20221027
  Serious: Yes (Life-Threatening, Hospitalization)
  Sender: FDA-Public Use
  Company Number: None

PATIENT
  Age: 45 Year
  Sex: Female

DRUGS (7)
  1. GEMCITABINE [Interacting]
     Active Substance: GEMCITABINE
     Indication: Leiomyosarcoma
     Dosage: STRENGTH: 200 MG, EVERY 3 WEEKS
     Dates: start: 20220215
  2. DOCETAXEL [Interacting]
     Active Substance: DOCETAXEL
     Indication: Leiomyosarcoma
     Dosage: STRENGTH: 20 MG/ML, CONCENTRATE FOR SOLUTION AND INFUSION, EFG 1 VIAL OF 8 ML, EVERY 3 WEEKS
     Dates: start: 20220215
  3. FLUOXETINE [Concomitant]
     Active Substance: FLUOXETINE HYDROCHLORIDE
     Dosage: STRENGTH: 20 MG, EFG, 28 CAPSULES
     Dates: start: 20220125
  4. FUROSEMIDE [Concomitant]
     Active Substance: FUROSEMIDE
     Indication: Oedema
     Dosage: STRENGTH: 40 MG, EFG, 30 TABLETS, 40MG DAY
     Dates: start: 20220210
  5. GABAPENTIN [Concomitant]
     Active Substance: GABAPENTIN
     Dosage: STRENGTH: 600 MG, EFG, 90 TABLETS, 1 TABLET 3 TIMES A DAY
     Dates: start: 20211006
  6. LEVOFLOXACIN [Concomitant]
     Active Substance: LEVOFLOXACIN
     Indication: Mastitis
     Dosage: STRENGTH: 500 MG, EFG, 7 TABLETS, 500MG DAY
     Dates: start: 20220211
  7. METOCLOPRAMIDE [Concomitant]
     Active Substance: METOCLOPRAMIDE
     Dosage: STRENGTH: 10 MG, EFG, 60 TABLETS
     Dates: start: 20220125

REACTIONS (3)
  - Neutropenia [Recovered/Resolved]
  - Pancytopenia [Recovered/Resolved]
  - Drug interaction [Unknown]

NARRATIVE: CASE EVENT DATE: 20220217
